FAERS Safety Report 10638352 (Version 3)
Quarter: 2014Q4

REPORT INFORMATION
  Report Type: Spontaneous
  Country: US (occurrence: US)
  Receive Date: 20141208
  Receipt Date: 20141224
  Transmission Date: 20150529
  Serious: Yes (Hospitalization, Other)
  Sender: FDA-Public Use
  Company Number: US-GLAXOSMITHKLINE-US2014GSK032617

PATIENT
  Age: 72 Year
  Sex: Female

DRUGS (5)
  1. SPIRIVA [Concomitant]
     Active Substance: TIOTROPIUM BROMIDE MONOHYDRATE
  2. DIGOXIN. [Concomitant]
     Active Substance: DIGOXIN
  3. CARDIZEM [Concomitant]
     Active Substance: DILTIAZEM HYDROCHLORIDE
  4. NEXIUM [Concomitant]
     Active Substance: ESOMEPRAZOLE MAGNESIUM
  5. ADVAIR DISKUS [Suspect]
     Active Substance: FLUTICASONE PROPIONATE\SALMETEROL XINAFOATE
     Indication: CHRONIC OBSTRUCTIVE PULMONARY DISEASE
     Dosage: 1 DF, BID
     Route: 055
     Dates: start: 2010

REACTIONS (9)
  - Pneumonia [Unknown]
  - Feeding disorder [Unknown]
  - Hernia repair [Recovering/Resolving]
  - Infection [Unknown]
  - Memory impairment [Unknown]
  - Hiatus hernia [Recovering/Resolving]
  - Hernia [Unknown]
  - Haematemesis [Unknown]
  - Weight decreased [Unknown]

NARRATIVE: CASE EVENT DATE: 20141117
